FAERS Safety Report 22375477 (Version 1)
Quarter: 2023Q2

REPORT INFORMATION
  Report Type: Other
  Country: DE (occurrence: None)
  Receive Date: 20230527
  Receipt Date: 20230527
  Transmission Date: 20230722
  Serious: Yes (Life-Threatening)
  Sender: FDA-Public Use
  Company Number: DE-ROCHE-3295183

PATIENT
  Age: 34 Year
  Sex: Female
  Weight: 57.658 kg

DRUGS (1)
  1. OCRELIZUMAB [Suspect]
     Active Substance: OCRELIZUMAB
     Indication: Relapsing-remitting multiple sclerosis
     Dosage: START DATE AND STOP DATE IF LAST DOSE PRIOR TO THE LMP (LAST MENSTRUAL PERIOD): 01/NOV/2022.
     Route: 065
     Dates: start: 20221101, end: 20221101

REACTIONS (2)
  - Abortion spontaneous [Unknown]
  - Maternal exposure before pregnancy [Unknown]

NARRATIVE: CASE EVENT DATE: 20230314
